FAERS Safety Report 22227997 (Version 1)
Quarter: 2023Q2

REPORT INFORMATION
  Report Type: Spontaneous
  Country: SE (occurrence: SE)
  Receive Date: 20230419
  Receipt Date: 20230419
  Transmission Date: 20230721
  Serious: Yes (Other)
  Sender: FDA-Public Use
  Company Number: None

PATIENT
  Age: 81 Year
  Sex: Female

DRUGS (29)
  1. VEKLURY [Suspect]
     Active Substance: REMDESIVIR
     Indication: COVID-19
     Dosage: 100 MG
     Route: 065
     Dates: start: 20230404
  2. GLYCERIN [Concomitant]
     Active Substance: GLYCERIN
     Dates: start: 20230213
  3. RISEDRONATE BLUEFISH [Concomitant]
     Dates: start: 20230311
  4. OXAZEPAM [Concomitant]
     Active Substance: OXAZEPAM
     Dates: start: 20230307
  5. HIPREX [METHENAMINE HIPPURATE] [Concomitant]
     Dates: start: 20190830, end: 20230405
  6. OESTRIOL [Concomitant]
     Dates: start: 20211109
  7. MIRTAZAPINE [Concomitant]
     Active Substance: MIRTAZAPINE
     Dates: start: 20230322
  8. MOVICOL [Concomitant]
     Active Substance: POLYETHYLENE GLYCOL 3350\POTASSIUM CHLORIDE\SODIUM BICARBONATE\SODIUM CHLORIDE
     Dates: start: 20230306
  9. NATRIUMKLORID ABCUR [Concomitant]
     Dates: start: 20230307, end: 20230405
  10. SODIUM PICOSULFATE [Concomitant]
     Active Substance: SODIUM PICOSULFATE
     Dates: start: 20230306
  11. SPIRONOLACTONE [Concomitant]
     Active Substance: SPIRONOLACTONE
     Dates: start: 20220521
  12. ATORVASTATIN ACTAVIS [ATORVASTATIN CALCIUM] [Concomitant]
     Dates: start: 20230213
  13. ELIQUIS [Concomitant]
     Active Substance: APIXABAN
     Dates: start: 20230307
  14. FOLSYRA EVOLAN [Concomitant]
     Dates: start: 20230310
  15. LOSARTAN POTASSIUM [Concomitant]
     Active Substance: LOSARTAN POTASSIUM
     Dates: start: 20230213
  16. INSULIN HUMAN [Concomitant]
     Active Substance: INSULIN HUMAN
     Dates: start: 20230320
  17. GABAPENTIN ORION [Concomitant]
     Dates: start: 20230223
  18. FUROSEMIDE [Concomitant]
     Active Substance: FUROSEMIDE
     Dates: start: 20220520
  19. JANUVIA [Concomitant]
     Active Substance: SITAGLIPTIN PHOSPHATE
     Dates: start: 20230214
  20. OXYCODONE HYDROCHLORIDE [Concomitant]
     Active Substance: OXYCODONE HYDROCHLORIDE
     Dates: start: 20230313
  21. RINGER-ACETAT BAXTER VIAFLO [Concomitant]
     Dates: start: 20230403, end: 20230404
  22. MINIDERM [GLYCEROL] [Concomitant]
     Dates: start: 20220329
  23. BISOPROLOL [Concomitant]
     Active Substance: BISOPROLOL
     Dates: start: 20220316
  24. OMEPRAZOL PENSA [OMEPRAZOLE] [Concomitant]
     Dates: start: 20230213
  25. METHOTREXATE SODIUM [Concomitant]
     Active Substance: METHOTREXATE SODIUM
     Dates: start: 20230309
  26. TARGINIQ ER [Concomitant]
     Active Substance: NALOXONE HYDROCHLORIDE\OXYCODONE HYDROCHLORIDE
     Dates: start: 20230314
  27. JARDIANCE [Concomitant]
     Active Substance: EMPAGLIFLOZIN
     Dates: start: 20220521
  28. ACETAMINOPHEN [Concomitant]
     Active Substance: ACETAMINOPHEN
     Dates: start: 20230313
  29. CHOLECALCIFEROL [Concomitant]
     Active Substance: CHOLECALCIFEROL
     Dates: start: 20230213

REACTIONS (1)
  - Bradycardia [Recovering/Resolving]

NARRATIVE: CASE EVENT DATE: 20230404
